FAERS Safety Report 24941798 (Version 1)
Quarter: 2025Q1

REPORT INFORMATION
  Report Type: Report from Study
  Country: CA (occurrence: CA)
  Receive Date: 20250207
  Receipt Date: 20250207
  Transmission Date: 20250409
  Serious: Yes (Other)
  Sender: SAMSUNG BIOEPIS
  Company Number: CA-SAMSUNG BIOEPIS-SB-2025-04151

PATIENT
  Age: 31 Year
  Sex: Female

DRUGS (1)
  1. ETANERCEPT [Suspect]
     Active Substance: ETANERCEPT
     Indication: Rheumatoid arthritis
     Dates: start: 20250123

REACTIONS (3)
  - Syncope [Recovered/Resolved]
  - Hypotension [Unknown]
  - Stress [Unknown]

NARRATIVE: CASE EVENT DATE: 20250126
